FAERS Safety Report 5766096-X (Version None)
Quarter: 2008Q2

REPORT INFORMATION
  Report Type: 
  Country: None (occurrence: None)
  Receive Date: 20080611
  Receipt Date: 20080602
  Transmission Date: 20081010
  Serious: Yes (Other)
  Sender: FDA-Public Use
  Company Number: MX-PFIZER INC-2008047153

PATIENT
  Sex: Male
  Weight: 88 kg

DRUGS (1)
  1. CHANTIX [Suspect]
     Indication: SMOKING CESSATION THERAPY
     Route: 048
     Dates: start: 20071101, end: 20080401

REACTIONS (4)
  - DEPRESSION [None]
  - HYPOTONIA [None]
  - MUSCLE CONTRACTURE [None]
  - PANIC REACTION [None]
